FAERS Safety Report 10480540 (Version 1)
Quarter: 2014Q3

REPORT INFORMATION
  Report Type: Spontaneous
  Country: US (occurrence: None)
  Receive Date: 20140926
  Receipt Date: 20140926
  Transmission Date: 20150326
  Serious: Yes (Other)
  Sender: FDA-Public Use
  Company Number: None

PATIENT
  Age: 67 Year
  Sex: Female
  Weight: 83.01 kg

DRUGS (1)
  1. SEROQUEL [Suspect]
     Active Substance: QUETIAPINE FUMARATE
     Indication: BIPOLAR DISORDER
     Dosage: 1 TO 3 TABLETS AT BEDTIME ONCE DAILY TAKEN BY MOUTH
     Route: 048
     Dates: start: 20140909, end: 20140910

REACTIONS (4)
  - Feeling abnormal [None]
  - Somnolence [None]
  - Headache [None]
  - Activities of daily living impaired [None]

NARRATIVE: CASE EVENT DATE: 20140909
